FAERS Safety Report 16929794 (Version 1)
Quarter: 2019Q4

REPORT INFORMATION
  Report Type: Spontaneous
  Country: US (occurrence: US)
  Receive Date: 20191017
  Receipt Date: 20191017
  Transmission Date: 20200122
  Serious: No
  Sender: FDA-Public Use
  Company Number: None

PATIENT
  Age: 37 Year
  Sex: Female
  Weight: 69.75 kg

DRUGS (1)
  1. SUMITRIPTAN [Concomitant]
     Active Substance: SUMATRIPTAN
     Indication: MIGRAINE
     Dosage: AS NEEDED

REACTIONS (10)
  - Dizziness [None]
  - Malaise [None]
  - Nausea [None]
  - Vomiting [None]
  - Incorrect route of product administration [None]
  - Palpitations [None]
  - Paraesthesia [None]
  - Migraine [None]
  - Hyperhidrosis [None]
  - Wrong technique in product usage process [None]

NARRATIVE: CASE EVENT DATE: 20161001
